FAERS Safety Report 6294767-8 (Version None)
Quarter: 2009Q3

REPORT INFORMATION
  Report Type: 
  Country: None (occurrence: None)
  Receive Date: 20090803
  Receipt Date: 20090722
  Transmission Date: 20100115
  Serious: Yes (Other)
  Sender: FDA-Public Use
  Company Number: JP-PFIZER INC-2009245991

PATIENT
  Age: 55 Year

DRUGS (8)
  1. GABAPEN [Suspect]
     Indication: ABDOMINAL PAIN
  2. GABAPEN [Suspect]
     Indication: BACK PAIN
  3. GABAPEN [Suspect]
     Indication: PAIN IN EXTREMITY
  4. NICERGOLINE [Suspect]
     Indication: PAIN
     Route: 048
  5. MORPHINE HCL ELIXIR [Suspect]
     Indication: PAIN
     Dosage: 30 MG, 1X/DAY
     Route: 048
  6. CLONAZEPAM [Suspect]
     Indication: PAIN
     Route: 048
  7. RISPERIDONE [Suspect]
     Indication: PAIN
     Route: 048
  8. FENTANYL [Concomitant]
     Indication: PAIN
     Dosage: 50 MG, PER THREE DAYS
     Route: 062

REACTIONS (3)
  - DELIRIUM [None]
  - DRUG INEFFECTIVE [None]
  - OVERDOSE [None]
